FAERS Safety Report 23678568 (Version 1)
Quarter: 2024Q1

REPORT INFORMATION
  Report Type: Spontaneous
  Country: US (occurrence: US)
  Receive Date: 20240327
  Receipt Date: 20240327
  Transmission Date: 20240410
  Serious: No
  Sender: FDA-Public Use
  Company Number: US-SEBELA IRELAND LIMITED-2023SEB00081

PATIENT
  Sex: Male

DRUGS (2)
  1. NAFTIN [Suspect]
     Active Substance: NAFTIFINE HYDROCHLORIDE
     Indication: Fungal foot infection
     Dosage: UNK
  2. NAFTIN [Suspect]
     Active Substance: NAFTIFINE HYDROCHLORIDE
     Dosage: UNK
     Dates: start: 2023

REACTIONS (2)
  - Drug ineffective [Unknown]
  - Expired product administered [Unknown]

NARRATIVE: CASE EVENT DATE: 20230101
